FAERS Safety Report 16184840 (Version 2)
Quarter: 2019Q2

REPORT INFORMATION
  Report Type: Spontaneous
  Country: US (occurrence: US)
  Receive Date: 20190411
  Receipt Date: 20190503
  Transmission Date: 20190711
  Serious: Yes (Other)
  Sender: FDA-Public Use
  Company Number: US-BAYER-2019-058481

PATIENT
  Age: 41 Year
  Sex: Female
  Weight: 82.28 kg

DRUGS (5)
  1. MIRENA [Suspect]
     Active Substance: LEVONORGESTREL
     Indication: CONTRACEPTION
  2. TOPROL XL [Concomitant]
     Active Substance: METOPROLOL SUCCINATE
     Dosage: 50 MG, QD
     Route: 048
     Dates: start: 20180621
  3. ASA [Concomitant]
     Active Substance: ASPIRIN
     Dosage: 81 MG, BID
     Route: 048
  4. ZYRTEC [Concomitant]
     Active Substance: CETIRIZINE HYDROCHLORIDE
     Dosage: UNK
     Dates: start: 20170627
  5. MIRENA [Suspect]
     Active Substance: LEVONORGESTREL
     Indication: CONTRACEPTION
     Dosage: 20 MCG/24HR, CONT
     Route: 015
     Dates: start: 20170627, end: 20180621

REACTIONS (6)
  - Hormone level abnormal [None]
  - Supraventricular tachycardia [None]
  - Hypomenorrhoea [None]
  - Breast pain [None]
  - Pain in extremity [None]
  - Post thrombotic syndrome [None]

NARRATIVE: CASE EVENT DATE: 2018
